FAERS Safety Report 11400688 (Version 2)
Quarter: 2015Q3

REPORT INFORMATION
  Report Type: Spontaneous
  Country: US (occurrence: US)
  Receive Date: 20150820
  Receipt Date: 20150825
  Transmission Date: 20151125
  Serious: No
  Sender: FDA-Public Use
  Company Number: US-PFIZER INC-2015277223

PATIENT
  Age: 59 Year
  Sex: Female
  Weight: 71 kg

DRUGS (17)
  1. ACIDOPHILUS [Concomitant]
     Active Substance: LACTOBACILLUS ACIDOPHILUS
     Dosage: 2 DF, 1X/DAY
     Route: 048
  2. POTASSIUM [Concomitant]
     Active Substance: POTASSIUM
     Dosage: 595 MG, 1X/DAY
     Route: 048
  3. MUCINEX [Concomitant]
     Active Substance: GUAIFENESIN
     Dosage: 400 MG, 3X/DAY
     Route: 048
  4. ATROVENT [Concomitant]
     Active Substance: IPRATROPIUM BROMIDE
     Indication: BRONCHITIS CHRONIC
     Dosage: UNK, AS NEEDED
     Route: 055
  5. FISH OIL [Concomitant]
     Active Substance: FISH OIL
     Indication: ARTERIAL OCCLUSIVE DISEASE
     Dosage: UNK, 1X/DAY
     Route: 048
  6. L-LYSINE [Concomitant]
     Active Substance: LYSINE
     Indication: HERPES VIRUS INFECTION
     Dosage: 2 DF, 1X/DAY
     Route: 048
  7. ROYAL JELLY [Concomitant]
     Active Substance: ROYAL JELLY
     Dosage: UNK, 1X/DAY
     Route: 048
  8. ZINC [Concomitant]
     Active Substance: ZINC\ZINC CHLORIDE
     Dosage: 595 MG, 1X/DAY
     Route: 048
  9. VITAMIN A AND D [Concomitant]
     Active Substance: LANOLIN\PETROLATUM
     Dosage: UNK, 1X/DAY
     Route: 048
  10. CALCIUM [Concomitant]
     Active Substance: CALCIUM
     Dosage: 1200 MG, 1X/DAY
     Route: 048
  11. CHANTIX [Suspect]
     Active Substance: VARENICLINE TARTRATE
     Indication: SMOKING CESSATION THERAPY
     Dosage: 1 MG, 2X/DAY
     Dates: start: 20150807
  12. ATROVENT [Concomitant]
     Active Substance: IPRATROPIUM BROMIDE
     Indication: CHRONIC OBSTRUCTIVE PULMONARY DISEASE
  13. PREMARIN [Concomitant]
     Active Substance: ESTROGENS, CONJUGATED
     Indication: HORMONE THERAPY
     Dosage: 0.45 MG, 1X/DAY
     Route: 048
  14. VITAMIN C [Concomitant]
     Active Substance: ASCORBIC ACID
     Dosage: 1000 MG, 1X/DAY
     Route: 048
  15. NITROSTAT [Concomitant]
     Active Substance: NITROGLYCERIN
     Indication: CHEST PAIN
     Dosage: UNK, AS NEEDED
  16. LEXAPRO [Concomitant]
     Active Substance: ESCITALOPRAM OXALATE
     Indication: DEPRESSION
     Dosage: 20 MG, 1X/DAY
     Route: 048
  17. LEXAPRO [Concomitant]
     Active Substance: ESCITALOPRAM OXALATE
     Indication: ANXIETY

REACTIONS (10)
  - Musculoskeletal pain [Unknown]
  - Disease progression [Recovering/Resolving]
  - Spinal pain [Not Recovered/Not Resolved]
  - Musculoskeletal stiffness [Unknown]
  - Insomnia [Not Recovered/Not Resolved]
  - Musculoskeletal chest pain [Not Recovered/Not Resolved]
  - Productive cough [Not Recovered/Not Resolved]
  - Chest pain [Unknown]
  - Cough [Recovering/Resolving]
  - Back pain [Not Recovered/Not Resolved]

NARRATIVE: CASE EVENT DATE: 201508
